FAERS Safety Report 10792732 (Version 2)
Quarter: 2015Q4

REPORT INFORMATION
  Report Type: Report from Study
  Country: US (occurrence: US)
  Receive Date: 20150211
  Receipt Date: 20151016
  Transmission Date: 20160304
  Serious: Yes (Hospitalization)
  Sender: FDA-Public Use
  Company Number: AE15-005

PATIENT
  Age: 63 Year
  Sex: Female
  Weight: 87.18 kg

DRUGS (2)
  1. BUTALBITAL, ACETAMINOPHEN, AND CAFFEINE [Suspect]
     Active Substance: ACETAMINOPHEN\BUTALBITAL\CAFFEINE
     Indication: MIGRAINE
     Route: 048
     Dates: start: 20140918, end: 20141003
  2. PLACEBO (PALBOCICLIB) [Concomitant]
     Route: 048
     Dates: start: 20140326

REACTIONS (3)
  - Sedation [Recovered/Resolved]
  - Troponin increased [Recovered/Resolved]
  - Chronic obstructive pulmonary disease [Recovered/Resolved]

NARRATIVE: CASE EVENT DATE: 20141003
